FAERS Safety Report 22655142 (Version 3)
Quarter: 2024Q3

REPORT INFORMATION
  Report Type: Spontaneous
  Country: GB (occurrence: GB)
  Receive Date: 20230629
  Receipt Date: 20240730
  Transmission Date: 20241016
  Serious: Yes (Death, Life-Threatening, Hospitalization, Other)
  Sender: RANBAXY
  Company Number: GB-SUN PHARMACEUTICAL INDUSTRIES LTD-2023R1-396923

PATIENT
  Age: 5 Year
  Sex: Female

DRUGS (7)
  1. AMPHOTERICIN B [Suspect]
     Active Substance: AMPHOTERICIN B
     Indication: Mucormycosis
     Dosage: UNK
     Route: 065
  2. AMPHOTERICIN B [Suspect]
     Active Substance: AMPHOTERICIN B
     Indication: Disseminated mucormycosis
  3. FLUCONAZOLE [Suspect]
     Active Substance: FLUCONAZOLE
     Indication: Mucormycosis
     Dosage: UNK
     Route: 065
  4. FLUCONAZOLE [Suspect]
     Active Substance: FLUCONAZOLE
     Indication: Disseminated mucormycosis
  5. METHOTREXATE [Suspect]
     Active Substance: METHOTREXATE
     Indication: Rheumatoid arthritis
     Dosage: UNK
     Route: 065
  6. VORICONAZOLE [Suspect]
     Active Substance: VORICONAZOLE
     Indication: Disseminated mucormycosis
     Dosage: UNK
     Route: 065
  7. VORICONAZOLE [Suspect]
     Active Substance: VORICONAZOLE
     Indication: Mucormycosis

REACTIONS (7)
  - Disseminated mucormycosis [Fatal]
  - Mucormycosis [Not Recovered/Not Resolved]
  - Drug ineffective [Unknown]
  - Hypertension [Not Recovered/Not Resolved]
  - Shock [Unknown]
  - Neutropenic sepsis [Unknown]
  - Multiple organ dysfunction syndrome [Unknown]
